FAERS Safety Report 18816678 (Version 1)
Quarter: 2021Q1

REPORT INFORMATION
  Report Type: Spontaneous
  Country: IT (occurrence: IT)
  Receive Date: 20210201
  Receipt Date: 20210201
  Transmission Date: 20210419
  Serious: Yes (Hospitalization, Other)
  Sender: FDA-Public Use
  Company Number: IT-ROCHE-2759656

PATIENT
  Sex: Male

DRUGS (3)
  1. RITUXIMAB. [Suspect]
     Active Substance: RITUXIMAB
     Indication: THROMBOTIC THROMBOCYTOPENIC PURPURA
     Route: 065
  2. CABLIVI [Suspect]
     Active Substance: CAPLACIZUMAB-YHDP
     Indication: THROMBOTIC THROMBOCYTOPENIC PURPURA
     Route: 065
     Dates: start: 2020, end: 2020
  3. CABLIVI [Suspect]
     Active Substance: CAPLACIZUMAB-YHDP
     Route: 065

REACTIONS (6)
  - Platelet count decreased [Unknown]
  - Device related infection [Unknown]
  - Intentional product use issue [Unknown]
  - Thrombotic thrombocytopenic purpura [Unknown]
  - Postoperative wound infection [Unknown]
  - Off label use [Unknown]

NARRATIVE: CASE EVENT DATE: 2020
